FAERS Safety Report 23105296 (Version 1)
Quarter: 2023Q4

REPORT INFORMATION
  Report Type: Spontaneous
  Country: US (occurrence: None)
  Receive Date: 20231023
  Receipt Date: 20231023
  Transmission Date: 20240110
  Serious: Yes (Hospitalization)
  Sender: FDA-Public Use
  Company Number: None

PATIENT
  Age: 32 Year
  Sex: Female

DRUGS (4)
  1. GAMMAGARD LIQUID [Suspect]
     Active Substance: HUMAN IMMUNOGLOBULIN G
     Indication: Immunodeficiency common variable
     Dosage: OTHER STRENGTH : 30GM/300M ?OTHER FREQUENCY : EVERY 3 TO 4 WEEKS;?
     Route: 042
     Dates: start: 201908
  2. GAMMAGARD LIQUID [Suspect]
     Active Substance: HUMAN IMMUNOGLOBULIN G
     Indication: Immunodeficiency common variable
     Dosage: OTHER STRENGTH : 5GM/50ML ?OTHER FREQUENCY : EVERY 3-4 WEEKS;?
     Route: 042
     Dates: start: 201908
  3. NORMAL SALINE FLUSH (5VIL) [Concomitant]
  4. DEXTROSE SOLN (500VIL,BAG) [Concomitant]

REACTIONS (1)
  - Exposure during pregnancy [None]

NARRATIVE: CASE EVENT DATE: 20231011
